FAERS Safety Report 7034618-7 (Version None)
Quarter: 2010Q4

REPORT INFORMATION
  Report Type: 
  Country: None (occurrence: None)
  Receive Date: 20101008
  Receipt Date: 20101005
  Transmission Date: 20110411
  Serious: Yes (Other)
  Sender: FDA-Public Use
  Company Number: GB-WYE-G06666510

PATIENT
  Sex: Female

DRUGS (6)
  1. ZOTON FASTAB [Suspect]
     Indication: COUGH
     Dosage: UNKNOWN
  2. BENDROFLUMETHIAZIDE [Concomitant]
     Indication: PRODUCT USED FOR UNKNOWN INDICATION
     Dosage: 2.5 MG, FREQUENCY UNKNOWN
  3. FLECAINIDE ACETATE [Concomitant]
     Indication: PRODUCT USED FOR UNKNOWN INDICATION
     Dosage: 50 MG, FREQUENCY UNSPECIFIED
  4. VERAPAMIL [Concomitant]
     Indication: PRODUCT USED FOR UNKNOWN INDICATION
  5. ACETYLSALICYLIC ACID SRT [Concomitant]
     Indication: PRODUCT USED FOR UNKNOWN INDICATION
     Dosage: 75 MG, FREQUENCY UNKNOWN
  6. NASONEX [Concomitant]
     Indication: PRODUCT USED FOR UNKNOWN INDICATION
     Dosage: 50 MCG, FREQUENCY UNKNOWN
     Route: 045
     Dates: start: 20100901

REACTIONS (11)
  - ABDOMINAL PAIN UPPER [None]
  - BURNING SENSATION [None]
  - CONSTIPATION [None]
  - FIBROMYALGIA [None]
  - FLUID RETENTION [None]
  - HEADACHE [None]
  - IRRITABLE BOWEL SYNDROME [None]
  - LABILE BLOOD PRESSURE [None]
  - PALPITATIONS [None]
  - PHOTOSENSITIVITY REACTION [None]
  - VOMITING [None]
